FAERS Safety Report 14335830 (Version 1)
Quarter: 2017Q4

REPORT INFORMATION
  Report Type: Spontaneous
  Country: GB (occurrence: GB)
  Receive Date: 20171229
  Receipt Date: 20171229
  Transmission Date: 20180321
  Serious: Yes (Death, Hospitalization, Other)
  Sender: FDA-Public Use
  Company Number: GB-VISTAPHARM, INC.-VER201712-001533

PATIENT
  Age: 83 Year
  Sex: Female

DRUGS (1)
  1. PHENYTOIN. [Suspect]
     Active Substance: PHENYTOIN
     Indication: STATUS EPILEPTICUS

REACTIONS (4)
  - Ischaemia [Fatal]
  - Gangrene [Fatal]
  - Incorrect route of drug administration [Fatal]
  - Peripheral ischaemia [Fatal]
